FAERS Safety Report 18715260 (Version 1)
Quarter: 2021Q1

REPORT INFORMATION
  Report Type: Spontaneous
  Country: US (occurrence: US)
  Receive Date: 20210108
  Receipt Date: 20210108
  Transmission Date: 20210419
  Serious: No
  Sender: FDA-Public Use
  Company Number: US-JNJFOC-20201249251

PATIENT
  Age: 79 Year
  Sex: Female
  Weight: 73.55 kg

DRUGS (1)
  1. WOMENS ROGAINE UNSCENTED [Suspect]
     Active Substance: MINOXIDIL
     Indication: ALOPECIA
     Dosage: AS DIRECTED
     Route: 061
     Dates: start: 2020, end: 2020

REACTIONS (3)
  - Hair growth abnormal [Not Recovered/Not Resolved]
  - Contraindicated product administered [Unknown]
  - Inappropriate schedule of product administration [Unknown]

NARRATIVE: CASE EVENT DATE: 2020
